FAERS Safety Report 23713370 (Version 2)
Quarter: 2024Q2

REPORT INFORMATION
  Report Type: Spontaneous
  Country: US (occurrence: None)
  Receive Date: 20240405
  Receipt Date: 20240411
  Transmission Date: 20240716
  Serious: Yes (Life-Threatening, Hospitalization, Other)
  Sender: FDA-Public Use
  Company Number: 2024A039095

PATIENT
  Age: 641 Month
  Sex: Female
  Weight: 110.2 kg

DRUGS (27)
  1. IMFINZI [Suspect]
     Active Substance: DURVALUMAB
     Indication: Non-small cell lung cancer
     Route: 042
     Dates: start: 202303, end: 20240209
  2. SIPAVIBART [Suspect]
     Active Substance: SIPAVIBART
     Indication: COVID-19 prophylaxis
     Dosage: RIGHT
     Route: 030
     Dates: start: 20230811, end: 20230811
  3. SIPAVIBART [Suspect]
     Active Substance: SIPAVIBART
     Indication: COVID-19 prophylaxis
     Dosage: LEFT
     Route: 030
     Dates: start: 20230811, end: 20230811
  4. SIPAVIBART [Suspect]
     Active Substance: SIPAVIBART
     Indication: COVID-19 prophylaxis
     Dosage: RIGHT
     Route: 030
     Dates: start: 20240209, end: 20240209
  5. INVESTIGATIONAL PRODUCT [Suspect]
     Active Substance: INVESTIGATIONAL PRODUCT
     Indication: COVID-19 prophylaxis
     Dosage: RIGHT
     Route: 030
     Dates: start: 20230811, end: 20230811
  6. INVESTIGATIONAL PRODUCT [Suspect]
     Active Substance: INVESTIGATIONAL PRODUCT
     Indication: COVID-19 prophylaxis
     Dosage: LEFT
     Route: 030
     Dates: start: 20230811, end: 20230811
  7. INVESTIGATIONAL PRODUCT [Suspect]
     Active Substance: INVESTIGATIONAL PRODUCT
     Indication: COVID-19 prophylaxis
     Dosage: RIGHT
     Route: 030
     Dates: start: 20240209, end: 20240209
  8. CILGAVIMAB\TIXAGEVIMAB [Suspect]
     Active Substance: CILGAVIMAB\TIXAGEVIMAB
     Indication: COVID-19 prophylaxis
     Dosage: RIGHT
     Route: 030
     Dates: start: 20230811, end: 20230811
  9. CILGAVIMAB\TIXAGEVIMAB [Suspect]
     Active Substance: CILGAVIMAB\TIXAGEVIMAB
     Indication: COVID-19 prophylaxis
     Dosage: LEFT
     Route: 030
     Dates: start: 20230811, end: 20230811
  10. CILGAVIMAB\TIXAGEVIMAB [Suspect]
     Active Substance: CILGAVIMAB\TIXAGEVIMAB
     Indication: COVID-19 prophylaxis
     Dosage: RIGHT
     Route: 030
     Dates: start: 20240209, end: 20240209
  11. ELIQUIS [Concomitant]
     Active Substance: APIXABAN
     Indication: Atrial fibrillation
     Route: 048
     Dates: start: 202209
  12. IBANDRONATE SODIUM [Concomitant]
     Active Substance: IBANDRONATE SODIUM
     Indication: Osteopenia
     Route: 048
     Dates: start: 2019
  13. LEVEMIR [Concomitant]
     Active Substance: INSULIN DETEMIR
     Indication: Diabetes mellitus
     Route: 058
     Dates: start: 1980
  14. NASTURTIUM OFFICINALE/SODIUM SULFATE/MYOSOTIS ARVENSIS/GERANIUM ROBERT [Concomitant]
     Indication: Graves^ disease
     Route: 048
     Dates: start: 1980, end: 20240222
  15. NASTURTIUM OFFICINALE/SODIUM SULFATE/MYOSOTIS ARVENSIS/GERANIUM ROBERT [Concomitant]
     Indication: Graves^ disease
     Route: 048
     Dates: start: 20240222
  16. MIRTAZAPINE [Concomitant]
     Active Substance: MIRTAZAPINE
     Indication: Depression
     Route: 048
     Dates: start: 202212
  17. ONDANSETRON [Concomitant]
     Active Substance: ONDANSETRON
     Indication: Nausea
     Dosage: 8.0MG AS REQUIRED
     Route: 060
     Dates: start: 2016
  18. PANTOPRAZOLE [Concomitant]
     Active Substance: PANTOPRAZOLE
     Indication: Gastrooesophageal reflux disease
     Route: 048
     Dates: start: 2016
  19. VITAMIN D3 [Concomitant]
     Active Substance: CHOLECALCIFEROL
     Indication: Vitamin D deficiency
     Route: 048
     Dates: start: 2020
  20. TRAMADOL [Concomitant]
     Active Substance: TRAMADOL\TRAMADOL HYDROCHLORIDE
     Indication: Back pain
     Dosage: 50.0MG AS REQUIRED
     Route: 048
     Dates: start: 2022
  21. TRAMADOL [Concomitant]
     Active Substance: TRAMADOL\TRAMADOL HYDROCHLORIDE
     Indication: Renal pain
     Dosage: 50.0MG AS REQUIRED
     Route: 048
     Dates: start: 2022
  22. TRAMADOL [Concomitant]
     Active Substance: TRAMADOL\TRAMADOL HYDROCHLORIDE
     Indication: Back pain
     Dosage: 50.0MG AS REQUIRED
     Route: 048
     Dates: start: 20230915
  23. TRAMADOL [Concomitant]
     Active Substance: TRAMADOL\TRAMADOL HYDROCHLORIDE
     Indication: Renal pain
     Dosage: 50.0MG AS REQUIRED
     Route: 048
     Dates: start: 20230915
  24. PRAMIPEXOLE [Concomitant]
     Active Substance: PRAMIPEXOLE\PRAMIPEXOLE DIHYDROCHLORIDE
     Indication: Restless legs syndrome
     Route: 048
     Dates: start: 202301
  25. ROSUVASTATIN [Concomitant]
     Active Substance: ROSUVASTATIN
     Indication: Hyperlipidaemia
     Route: 048
     Dates: start: 2021
  26. AMLODIPINE [Concomitant]
     Active Substance: AMLODIPINE BESYLATE
     Indication: Atrial fibrillation
     Route: 048
     Dates: start: 20231113
  27. ASPIRIN [Concomitant]
     Active Substance: ASPIRIN
     Indication: Atrial fibrillation
     Route: 048
     Dates: start: 20231113

REACTIONS (7)
  - Cardiac failure congestive [Recovered/Resolved]
  - Pulmonary hypertension [Recovered/Resolved]
  - Atrial fibrillation [Recovered/Resolved]
  - Acute kidney injury [Recovered/Resolved]
  - Pleural effusion [Recovered/Resolved]
  - Nephrotic syndrome [Recovered/Resolved]
  - Myocardial ischaemia [Recovered/Resolved]

NARRATIVE: CASE EVENT DATE: 20240209
